FAERS Safety Report 11444698 (Version 1)
Quarter: 2015Q3

REPORT INFORMATION
  Report Type: Not Available
  Country: US (occurrence: US)
  Receive Date: 20150902
  Receipt Date: 20150902
  Transmission Date: 20151125
  Serious: No
  Sender: FDA-Public Use
  Company Number: US-LUPIN PHARMACEUTICALS INC.-E2B_00003941

PATIENT
  Age: 54 Year
  Sex: Male

DRUGS (1)
  1. MELOXICAM TABLETS USP 15MG [Suspect]
     Active Substance: MELOXICAM
     Indication: PRODUCT USED FOR UNKNOWN INDICATION
     Dates: start: 201503

REACTIONS (3)
  - Rash [Unknown]
  - Urticaria [Unknown]
  - Hot flush [Unknown]

NARRATIVE: CASE EVENT DATE: 201507
